FAERS Safety Report 9869844 (Version 3)
Quarter: 2014Q2

REPORT INFORMATION
  Report Type: Report from Study
  Country: IT (occurrence: IT)
  Receive Date: 20140205
  Receipt Date: 20140526
  Transmission Date: 20141212
  Serious: Yes (Other)
  Sender: FDA-Public Use
  Company Number: PHHY2014IT013912

PATIENT
  Age: 51 Year
  Sex: 0

DRUGS (2)
  1. AFINITOR [Suspect]
     Route: 048
  2. AFINITOR [Suspect]
     Dosage: 5 MG
     Route: 048

REACTIONS (2)
  - Interstitial lung disease [Unknown]
  - Lung disorder [Unknown]
